FAERS Safety Report 11976429 (Version 1)
Quarter: 2016Q1

REPORT INFORMATION
  Report Type: Spontaneous
  Country: AU (occurrence: AU)
  Receive Date: 20160129
  Receipt Date: 20160129
  Transmission Date: 20160526
  Serious: Yes (Life-Threatening)
  Sender: FDA-Public Use
  Company Number: AU-ROCHE-1697294

PATIENT
  Age: 82 Year
  Sex: Male

DRUGS (4)
  1. ACTILYSE [Suspect]
     Active Substance: ALTEPLASE
     Indication: THERAPEUTIC PROCEDURE
     Dosage: 10 MG IN 50 ML OF SALINE.
     Route: 034
  2. DORNASE ALFA [Suspect]
     Active Substance: DORNASE ALFA
     Indication: THERAPEUTIC PROCEDURE
     Dosage: (5 MG IN 50 ML OF SALINE 12-HOURLY
     Route: 034
  3. ENOXAPARIN [Concomitant]
     Active Substance: ENOXAPARIN
     Indication: PRODUCT USED FOR UNKNOWN INDICATION
     Route: 058
  4. PIPERACILLIN/TAZOBACTAM [Concomitant]
     Active Substance: PIPERACILLIN SODIUM\TAZOBACTAM SODIUM
     Indication: PRODUCT USED FOR UNKNOWN INDICATION
     Route: 042

REACTIONS (1)
  - Haemothorax [Unknown]
